FAERS Safety Report 6171367-1 (Version None)
Quarter: 2009Q2

REPORT INFORMATION
  Report Type: 
  Country: None (occurrence: None)
  Receive Date: 20090429
  Receipt Date: 20090429
  Transmission Date: 20091009
  Serious: Yes (Other)
  Sender: FDA-Public Use
  Company Number: US-PFIZER INC-2009185909

PATIENT
  Sex: Female
  Weight: 77.11 kg

DRUGS (8)
  1. CELEBREX [Suspect]
     Indication: OSTEOARTHRITIS
     Dates: start: 20090123, end: 20090316
  2. LITHIUM CARBONATE [Suspect]
     Dates: end: 20090316
  3. HALOPERIDOL DECANOATE [Concomitant]
     Indication: PSYCHOTIC DISORDER
  4. ASPIRIN [Concomitant]
     Indication: CARDIOVASCULAR DISORDER
  5. METFORMIN HCL [Concomitant]
     Indication: DIABETES MELLITUS
  6. LORATADINE [Concomitant]
     Dosage: 10 MG, UNK
  7. FLUTICASONE [Concomitant]
     Indication: HYPERSENSITIVITY
     Route: 045
  8. ENALAPRIL MALEATE [Concomitant]
     Indication: HYPERTENSION
     Dosage: 20 MG, UNK

REACTIONS (4)
  - ANTIPSYCHOTIC DRUG LEVEL INCREASED [None]
  - ASTHENIA [None]
  - CONFUSIONAL STATE [None]
  - TREMOR [None]
